FAERS Safety Report 5624494-9 (Version None)
Quarter: 2008Q1

REPORT INFORMATION
  Report Type: 
  Country: None (occurrence: None)
  Receive Date: 20080213
  Receipt Date: 20080130
  Transmission Date: 20080703
  Serious: Yes (Hospitalization, Other)
  Sender: FDA-Public Use
  Company Number: US-AMGEN-STX263266

PATIENT
  Sex: Male

DRUGS (2)
  1. ENBREL [Suspect]
     Indication: PSORIATIC ARTHROPATHY
     Route: 058
     Dates: start: 20011001
  2. ENBREL [Suspect]
     Indication: PSORIASIS

REACTIONS (6)
  - ANAEMIA [None]
  - ATRIAL FIBRILLATION [None]
  - GASTROINTESTINAL DISORDER [None]
  - INTERVERTEBRAL DISC PROTRUSION [None]
  - PROCEDURAL COMPLICATION [None]
  - VENTRICULAR EXTRASYSTOLES [None]
